FAERS Safety Report 4822926-7 (Version None)
Quarter: 2005Q4

REPORT INFORMATION
  Report Type: 
  Country: None (occurrence: None)
  Receive Date: 20051104
  Receipt Date: 20051024
  Transmission Date: 20060501
  Serious: Yes (Other)
  Sender: FDA-Public Use
  Company Number: 2005146782

PATIENT
  Sex: Male

DRUGS (1)
  1. CAVERJECT [Suspect]
     Indication: ILL-DEFINED DISORDER
     Dosage: (5 MCG, AS NECESSARY), INTRA-CAVERNOSA
     Route: 017

REACTIONS (3)
  - DRUG EFFECT DECREASED [None]
  - PENIS DISORDER [None]
  - PRIAPISM [None]
